FAERS Safety Report 11544672 (Version 1)
Quarter: 2015Q3

REPORT INFORMATION
  Report Type: Spontaneous
  Country: US (occurrence: None)
  Receive Date: 20150923
  Receipt Date: 20150923
  Transmission Date: 20151125
  Serious: Yes (Life-Threatening)
  Sender: FDA-Public Use
  Company Number: None

PATIENT
  Age: 69 Year
  Sex: Male
  Weight: 55.9 kg

DRUGS (1)
  1. CETUXIMAB [Suspect]
     Active Substance: CETUXIMAB
     Indication: HEAD AND NECK CANCER
     Route: 042
     Dates: start: 20150831, end: 20150831

REACTIONS (13)
  - Oropharyngeal pain [None]
  - Dyspnoea [None]
  - Pharyngeal oedema [None]
  - Urticaria [None]
  - Dysphagia [None]
  - Eye pruritus [None]
  - Dizziness [None]
  - Rash erythematous [None]
  - Nausea [None]
  - Somnolence [None]
  - Vomiting [None]
  - Sedation [None]
  - Anaphylactic reaction [None]

NARRATIVE: CASE EVENT DATE: 20150831
